FAERS Safety Report 16229304 (Version 1)
Quarter: 2019Q2

REPORT INFORMATION
  Report Type: Spontaneous
  Country: AU (occurrence: AU)
  Receive Date: 20190423
  Receipt Date: 20190423
  Transmission Date: 20190711
  Serious: Yes (Other)
  Sender: FDA-Public Use
  Company Number: AU-ASTRAZENECA-2019SE59214

PATIENT
  Age: 28 Year
  Sex: Male

DRUGS (1)
  1. SYMBICORT [Suspect]
     Active Substance: BUDESONIDE\FORMOTEROL FUMARATE DIHYDRATE
     Indication: ASTHMA
     Dosage: 400/12, UNKNOWN UNKNOWN
     Route: 055

REACTIONS (5)
  - Wheezing [Unknown]
  - Anxiety [Unknown]
  - Product dose omission [Unknown]
  - Dyspnoea [Unknown]
  - Nausea [Unknown]
